FAERS Safety Report 7274989-X (Version None)
Quarter: 2011Q1

REPORT INFORMATION
  Report Type: 
  Country: None (occurrence: None)
  Receive Date: 20110204
  Receipt Date: 20110128
  Transmission Date: 20110831
  Serious: Yes (Hospitalization, Other)
  Sender: FDA-Public Use
  Company Number: US-ROCHE-740779

PATIENT
  Sex: Female
  Weight: 52.2 kg

DRUGS (3)
  1. ACCUTANE [Suspect]
     Indication: ACNE
     Dosage: FIRST COURSE
     Route: 048
     Dates: start: 19990101
  2. ACCUTANE [Suspect]
     Route: 048
     Dates: start: 20010101, end: 20010301
  3. ORTHO TRI-CYCLEN [Concomitant]

REACTIONS (7)
  - OROPHARYNGEAL PAIN [None]
  - INFLAMMATORY BOWEL DISEASE [None]
  - CROHN'S DISEASE [None]
  - SMALL INTESTINAL OBSTRUCTION [None]
  - EAR PAIN [None]
  - DEPRESSION [None]
  - BLOOD TRIGLYCERIDES INCREASED [None]
